FAERS Safety Report 9743232 (Version 2)
Quarter: 2015Q3

REPORT INFORMATION
  Report Type: Spontaneous
  Country: US (occurrence: US)
  Receive Date: 20131210
  Receipt Date: 20150804
  Transmission Date: 20151125
  Serious: No
  Sender: FDA-Public Use
  Company Number: US-GILEAD-2009-0025079

PATIENT
  Age: 62 Year
  Sex: Female
  Weight: 126.1 kg

DRUGS (13)
  1. ENALAPRIL MALEATE. [Concomitant]
     Active Substance: ENALAPRIL MALEATE
  2. SIMVASTATIN. [Concomitant]
     Active Substance: SIMVASTATIN
  3. SPIRIVA [Concomitant]
     Active Substance: TIOTROPIUM BROMIDE MONOHYDRATE
  4. CLOTRIMAZOLE AND BETAMETHASONE DIPROPIONATE [Concomitant]
     Active Substance: BETAMETHASONE\BETAMETHASONE DIPROPIONATE\CLOTRIMAZOLE
  5. TYLENOL [Concomitant]
     Active Substance: ACETAMINOPHEN
  6. LETAIRIS [Suspect]
     Active Substance: AMBRISENTAN
     Indication: PULMONARY ARTERIAL HYPERTENSION
     Route: 048
     Dates: start: 20090720, end: 20091026
  7. ATENOLOL. [Concomitant]
     Active Substance: ATENOLOL
  8. GLIPIZIDE. [Concomitant]
     Active Substance: GLIPIZIDE
  9. PLAVIX [Concomitant]
     Active Substance: CLOPIDOGREL BISULFATE
  10. ISOSORBIDE MN [Concomitant]
     Active Substance: ISOSORBIDE MONONITRATE
  11. ACTOS [Concomitant]
     Active Substance: PIOGLITAZONE HYDROCHLORIDE
  12. LASIX [Concomitant]
     Active Substance: FUROSEMIDE
  13. METFORMIN HCL [Concomitant]
     Active Substance: METFORMIN HYDROCHLORIDE

REACTIONS (6)
  - Nasal congestion [Unknown]
  - Headache [Recovering/Resolving]
  - Peripheral swelling [Unknown]
  - Dyspnoea [Unknown]
  - Tinnitus [Unknown]
  - Flushing [Recovering/Resolving]
